FAERS Safety Report 8929151 (Version 2)
Quarter: 2012Q4

REPORT INFORMATION
  Report Type: 
  Country: US (occurrence: US)
  Receive Date: 20121127
  Receipt Date: 20121129
  Transmission Date: 20130627
  Serious: Yes (Hospitalization, Other)
  Sender: FDA-Public Use
  Company Number: PHHY2012US106515

PATIENT
  Age: 8 Year
  Sex: Male
  Weight: 48 kg

DRUGS (4)
  1. ONDANSETRON [Suspect]
     Dosage: 15 DF, UNK
     Route: 048
  2. MERCAPTOPURINE [Concomitant]
     Dosage: 50 mg, QD
     Route: 048
  3. METHOTREXATE [Concomitant]
     Dosage: 12.5 mg, QW
     Route: 048
  4. SULFAMETHOXAZOLE AND TRIMETHOPRIM [Concomitant]
     Dosage: 80 mg, BID
     Route: 048

REACTIONS (4)
  - Hypotension [Recovered/Resolved]
  - Anaemia macrocytic [Unknown]
  - Intentional overdose [Unknown]
  - Vomiting [Unknown]
